FAERS Safety Report 8924109 (Version 6)
Quarter: 2013Q1

REPORT INFORMATION
  Report Type: Spontaneous
  Country: DK (occurrence: DK)
  Receive Date: 20121126
  Receipt Date: 20130125
  Transmission Date: 20140127
  Serious: Yes (Death, Other)
  Sender: FDA-Public Use
  Company Number: PHHY2012DK107266

PATIENT
  Sex: Female

DRUGS (11)
  1. PACLITAXEL [Suspect]
     Route: 065
  2. VINORELBINE [Suspect]
     Route: 065
  3. LETROZOLE [Suspect]
     Route: 065
  4. TRASTUZUMAB [Suspect]
  5. HERCEPTIN [Suspect]
     Indication: BREAST CANCER
     Dosage: UNK
     Route: 065
  6. LAPATINIB [Suspect]
  7. ERIBULIN [Suspect]
     Route: 065
  8. XELODA [Suspect]
     Route: 065
  9. EPIRUBICIN [Concomitant]
  10. CYCLOPHOSPHAMIDE [Concomitant]
  11. TAXOTERE [Concomitant]

REACTIONS (7)
  - Malignant neoplasm progression [Fatal]
  - Metastases to bone [Fatal]
  - Bone pain [Fatal]
  - Superior vena cava syndrome [Unknown]
  - Lymphadenopathy [Unknown]
  - Sensory disturbance [Unknown]
  - Fracture [Unknown]
